FAERS Safety Report 6071377-9 (Version None)
Quarter: 2009Q1

REPORT INFORMATION
  Report Type: 
  Country: None (occurrence: None)
  Receive Date: 20090204
  Receipt Date: 20090127
  Transmission Date: 20090719
  Serious: Yes (Hospitalization)
  Sender: FDA-Public Use
  Company Number: 20096097

PATIENT
  Sex: Male

DRUGS (1)
  1. LIORESAL [Suspect]
     Indication: MUSCLE SPASTICITY
     Dosage: 325 MG, DAILY, INTRATHECAL

REACTIONS (2)
  - DRUG WITHDRAWAL SYNDROME [None]
  - TREATMENT NONCOMPLIANCE [None]
